FAERS Safety Report 25788843 (Version 1)
Quarter: 2025Q3

REPORT INFORMATION
  Report Type: Spontaneous
  Country: CA (occurrence: CA)
  Receive Date: 20250911
  Receipt Date: 20250911
  Transmission Date: 20251021
  Serious: Yes (Other)
  Sender: TEVA
  Company Number: CA-TEVA-VS-3371637

PATIENT
  Age: 57 Year
  Sex: Male
  Weight: 73 kg

DRUGS (1)
  1. FINASTERIDE [Suspect]
     Active Substance: FINASTERIDE
     Indication: Product used for unknown indication
     Route: 048

REACTIONS (2)
  - Alopecia [Recovered/Resolved]
  - Product substitution issue [Recovered/Resolved]
